FAERS Safety Report 5259608-6 (Version None)
Quarter: 2007Q1

REPORT INFORMATION
  Report Type: 
  Country: None (occurrence: None)
  Receive Date: 20070307
  Receipt Date: 20070307
  Transmission Date: 20070707
  Serious: Yes (Hospitalization)
  Sender: FDA-Public Use
  Company Number: None

PATIENT
  Age: 42 Year
  Sex: Female
  Weight: 115 kg

DRUGS (1)
  1. CALCIUM GLUCONATE [Suspect]
     Indication: HYPERKALAEMIA
     Dosage: 10ML OF 10% SOLUTION ONE TIME DOSE IV BOLUS
     Route: 040
     Dates: start: 20070304

REACTIONS (6)
  - ADVERSE DRUG REACTION [None]
  - CATHETER RELATED INFECTION [None]
  - ERYTHEMA [None]
  - EXTRAVASATION [None]
  - IRRITABILITY [None]
  - NECROSIS [None]
